FAERS Safety Report 10968664 (Version 1)
Quarter: 2015Q1

REPORT INFORMATION
  Report Type: Spontaneous
  Country: US (occurrence: US)
  Receive Date: 20150330
  Receipt Date: 20150330
  Transmission Date: 20150721
  Serious: Yes (Disabling, Other)
  Sender: FDA-Public Use
  Company Number: US-BRISTOL-MYERS SQUIBB COMPANY-BMS-2015-017449

PATIENT
  Sex: Male
  Weight: 79 kg

DRUGS (1)
  1. ERBITUX [Suspect]
     Active Substance: CETUXIMAB
     Indication: HEAD AND NECK CANCER
     Dosage: 15 TOTAL DOSES
     Route: 042
     Dates: start: 2014

REACTIONS (2)
  - Swelling [Not Recovered/Not Resolved]
  - Dermatitis acneiform [Not Recovered/Not Resolved]
